FAERS Safety Report 9123225 (Version 1)
Quarter: 2013Q1

REPORT INFORMATION
  Report Type: Spontaneous
  Country: FR (occurrence: FR)
  Receive Date: 20130115
  Receipt Date: 20130115
  Transmission Date: 20140127
  Serious: Yes (Hospitalization)
  Sender: FDA-Public Use
  Company Number: FR-ASTRAZENECA-2013SE02103

PATIENT
  Age: 24234 Day
  Sex: Male

DRUGS (14)
  1. INEXIUM [Suspect]
     Route: 048
     Dates: start: 201208
  2. PRADAXA [Suspect]
     Route: 048
     Dates: start: 2011, end: 20120913
  3. EVEROLIMUS [Suspect]
     Route: 065
     Dates: start: 20120814
  4. PREVISCAN [Suspect]
     Route: 048
     Dates: start: 20120815, end: 20120910
  5. NEURONTIN [Suspect]
     Route: 048
     Dates: start: 201206
  6. CRESTOR [Concomitant]
     Route: 048
     Dates: start: 2009
  7. LASILIX [Concomitant]
     Route: 048
     Dates: start: 2004
  8. HEMIGOXINE [Concomitant]
     Dosage: DAILY
     Route: 048
     Dates: start: 2005
  9. RAMIPRIL [Concomitant]
     Route: 048
  10. ALDACTONE [Concomitant]
     Route: 048
     Dates: start: 2011
  11. BISOPROLOL [Concomitant]
     Route: 048
     Dates: start: 2006
  12. KARDEGIC [Concomitant]
     Route: 048
     Dates: start: 2005
  13. INSULINE LANTUS [Concomitant]
     Dosage: 34 UNIT, DAILY
     Route: 058
  14. NOVOMIX [Concomitant]
     Dosage: 30 UNIT
     Route: 058

REACTIONS (3)
  - Anti factor VIII antibody positive [Not Recovered/Not Resolved]
  - Muscle haemorrhage [Unknown]
  - Fall [Unknown]
